FAERS Safety Report 10834368 (Version 1)
Quarter: 2015Q1

REPORT INFORMATION
  Report Type: Spontaneous
  Country: US (occurrence: US)
  Receive Date: 20150219
  Receipt Date: 20150219
  Transmission Date: 20150721
  Serious: Yes (Other)
  Sender: FDA-Public Use
  Company Number: US-ABBVIE-14P-163-1210519-00

PATIENT
  Age: 65 Year
  Sex: Female
  Weight: 63.56 kg

DRUGS (4)
  1. ARAVA [Concomitant]
     Active Substance: LEFLUNOMIDE
     Indication: RHEUMATOID ARTHRITIS
  2. SYNTHROID [Concomitant]
     Active Substance: LEVOTHYROXINE SODIUM
     Indication: HYPOTHYROIDISM
  3. HUMIRA [Suspect]
     Active Substance: ADALIMUMAB
     Indication: RHEUMATOID ARTHRITIS
     Dates: start: 201308
  4. CYTAMEL [Concomitant]
     Indication: HYPOTHYROIDISM

REACTIONS (2)
  - Rash pustular [Not Recovered/Not Resolved]
  - Rash pustular [Recovered/Resolved]

NARRATIVE: CASE EVENT DATE: 201310
